FAERS Safety Report 6501501-2 (Version None)
Quarter: 2009Q4

REPORT INFORMATION
  Report Type: 
  Country: None (occurrence: None)
  Receive Date: 20091216
  Receipt Date: 20091208
  Transmission Date: 20100525
  Serious: Yes (Hospitalization)
  Sender: FDA-Public Use
  Company Number: A0834204A

PATIENT
  Sex: Female
  Weight: 54.8 kg

DRUGS (1)
  1. TOPOTECAN [Suspect]
     Dosage: 1.5MGM2 CYCLIC
     Route: 048
     Dates: start: 20090724

REACTIONS (2)
  - CONSTIPATION [None]
  - VOMITING [None]
